FAERS Safety Report 8513926-4 (Version None)
Quarter: 2012Q3

REPORT INFORMATION
  Report Type: 
  Country: None (occurrence: None)
  Receive Date: 20120717
  Receipt Date: 20120703
  Transmission Date: 20120928
  Serious: Yes (Hospitalization, Disabling, Other)
  Sender: FDA-Public Use
  Company Number: US-MSD-1203USA03367

PATIENT

DRUGS (6)
  1. AVALIDE [Concomitant]
  2. HORMONES (UNSPECIFIED) [Concomitant]
     Indication: HOT FLUSH
     Dates: start: 19960101
  3. CALCIUM (UNSPECIFIED) [Concomitant]
     Dates: start: 19931211
  4. FOSAMAX [Suspect]
     Indication: OSTEOPENIA
     Dosage: 70 MG, QW
     Route: 048
     Dates: start: 20020530, end: 20110201
  5. VITAMIN D (UNSPECIFIED) [Concomitant]
  6. FOSAMAX [Suspect]
     Dosage: 70 MG, QW
     Route: 048
     Dates: start: 20090219, end: 20100303

REACTIONS (31)
  - FEMUR FRACTURE [None]
  - STRESS FRACTURE [None]
  - POLYP COLORECTAL [None]
  - HAEMORRHOIDS [None]
  - COUGH [None]
  - HYPOGLOSSAL NERVE DISORDER [None]
  - BONE DISORDER [None]
  - MONOPARESIS [None]
  - DYSPEPSIA [None]
  - ARTERIOSCLEROSIS [None]
  - EPICONDYLITIS [None]
  - RASH [None]
  - OSTEOPOROSIS [None]
  - ARTHROPATHY [None]
  - HEPATIC CYST [None]
  - URINARY TRACT INFECTION [None]
  - ANAEMIA [None]
  - HYPERCHOLESTEROLAEMIA [None]
  - INSOMNIA [None]
  - TONGUE PARALYSIS [None]
  - HYPERLIPIDAEMIA [None]
  - VITAMIN D DECREASED [None]
  - IMPAIRED FASTING GLUCOSE [None]
  - BREAST CANCER IN SITU [None]
  - CALCULUS URETERIC [None]
  - HEPATIC STEATOSIS [None]
  - CYSTITIS NONINFECTIVE [None]
  - BACK PAIN [None]
  - LOW TURNOVER OSTEOPATHY [None]
  - RESIDUAL URINE VOLUME [None]
  - JOINT DISLOCATION [None]
